FAERS Safety Report 13540168 (Version 1)
Quarter: 2017Q2

REPORT INFORMATION
  Report Type: Spontaneous
  Country: US (occurrence: US)
  Receive Date: 20170512
  Receipt Date: 20170512
  Transmission Date: 20170830
  Serious: No
  Sender: FDA-Public Use
  Company Number: US-GLAXOSMITHKLINE-US2017068144

PATIENT
  Age: 59 Year
  Sex: Female

DRUGS (1)
  1. TARGET NTS CLEAR 21 MG TRANSDERMAL PATCH [Suspect]
     Active Substance: NICOTINE
     Indication: SMOKING CESSATION THERAPY
     Dosage: 21 MG, UNK (USING THIS FOR A MONTH AND A HALF )
     Dates: start: 201704, end: 20170507

REACTIONS (2)
  - Application site pruritus [Not Recovered/Not Resolved]
  - Application site reaction [Unknown]
